FAERS Safety Report 20197951 (Version 4)
Quarter: 2022Q2

REPORT INFORMATION
  Report Type: Report from Study
  Country: CA (occurrence: CA)
  Receive Date: 20211217
  Receipt Date: 20220408
  Transmission Date: 20220720
  Serious: Yes (Other)
  Sender: FDA-Public Use
  Company Number: CA-TAKEDA-2021TUS069185

PATIENT
  Age: 55 Year
  Sex: Male

DRUGS (8)
  1. VEDOLIZUMAB [Suspect]
     Active Substance: VEDOLIZUMAB
     Indication: Colitis ulcerative
     Dosage: 300 MILLIGRAM, Q4WEEKS
     Route: 042
     Dates: start: 20160623, end: 202004
  2. VEDOLIZUMAB [Suspect]
     Active Substance: VEDOLIZUMAB
     Dosage: 300 MILLIGRAM, Q4WEEKS
     Route: 042
     Dates: start: 20200915
  3. VEDOLIZUMAB [Suspect]
     Active Substance: VEDOLIZUMAB
     Dosage: 300 MILLIGRAM, Q4WEEKS
     Route: 042
  4. PREDNISOLONE [Concomitant]
     Active Substance: PREDNISOLONE
     Dosage: UNK
  5. EPIVAL [Concomitant]
     Active Substance: DIVALPROEX SODIUM
     Dosage: 250 MILLIGRAM, BID
  6. RABEPRAZOLE SODIUM [Concomitant]
     Active Substance: RABEPRAZOLE SODIUM
     Dosage: 40 MILLIGRAM
  7. SEROQUEL XR [Concomitant]
     Active Substance: QUETIAPINE FUMARATE
     Dosage: 50 MILLIGRAM, QD
  8. FENTANYL [Concomitant]
     Active Substance: FENTANYL
     Dosage: UNK

REACTIONS (6)
  - Lung neoplasm malignant [Unknown]
  - Abdominal discomfort [Unknown]
  - Impaired healing [Unknown]
  - Pleural effusion [Unknown]
  - Product dose omission issue [Unknown]
  - Off label use [Unknown]

NARRATIVE: CASE EVENT DATE: 20160623
